FAERS Safety Report 8521441-7 (Version None)
Quarter: 2012Q3

REPORT INFORMATION
  Report Type: 
  Country: None (occurrence: None)
  Receive Date: 20120712
  Receipt Date: 20120712
  Transmission Date: 20120928
  Serious: Yes (Hospitalization)
  Sender: FDA-Public Use
  Company Number: None

PATIENT
  Age: 48 Year
  Sex: Female
  Weight: 90.2 kg

DRUGS (1)
  1. LYRICA [Suspect]
     Indication: BACK PAIN
     Dosage: 50MG BID 047 (2 DOSES)
     Dates: start: 20120622, end: 20120623

REACTIONS (3)
  - BURNING SENSATION [None]
  - ORAL DISORDER [None]
  - ERYTHEMA [None]
